FAERS Safety Report 22217474 (Version 1)
Quarter: 2023Q2

REPORT INFORMATION
  Report Type: Spontaneous
  Country: IE (occurrence: IE)
  Receive Date: 20230417
  Receipt Date: 20230417
  Transmission Date: 20230722
  Serious: Yes (Other)
  Sender: FDA-Public Use
  Company Number: IE-ALKEM LABORATORIES LIMITED-IE-ALKEM-2023-01908

PATIENT
  Age: 18 Year
  Sex: Male
  Weight: 76 kg

DRUGS (6)
  1. ARIPIPRAZOLE [Suspect]
     Active Substance: ARIPIPRAZOLE
     Indication: Schizophrenia
     Dosage: UNK (DEPOT INJECTION) (LONG-ACTING)
     Route: 030
  2. ARIPIPRAZOLE [Suspect]
     Active Substance: ARIPIPRAZOLE
     Indication: Autism spectrum disorder
  3. CLOZAPINE [Suspect]
     Active Substance: CLOZAPINE
     Indication: Schizophrenia
     Dosage: 500 MG/DAY, BID (100 MG IN THE MORNING AND 400 MG AT BEDTIME) (TWO DIVIDED DOSES)
     Route: 065
  4. CLOZAPINE [Suspect]
     Active Substance: CLOZAPINE
     Indication: Autism spectrum disorder
     Dosage: UNK (DOSE INCREASED)
     Route: 065
  5. RISPERIDONE [Suspect]
     Active Substance: RISPERIDONE
     Indication: Schizophrenia
     Dosage: UNK
     Route: 048
  6. RISPERIDONE [Suspect]
     Active Substance: RISPERIDONE
     Indication: Autism spectrum disorder

REACTIONS (9)
  - Dystonia [Recovering/Resolving]
  - Tardive dyskinesia [Recovering/Resolving]
  - Therapy partial responder [Unknown]
  - Dry mouth [Recovering/Resolving]
  - Dysphagia [Recovering/Resolving]
  - Gastrooesophageal reflux disease [Recovering/Resolving]
  - Oesophageal achalasia [Recovering/Resolving]
  - Salivary hypersecretion [Recovering/Resolving]
  - Weight decreased [Recovering/Resolving]
